FAERS Safety Report 7406123-7 (Version None)
Quarter: 2011Q2

REPORT INFORMATION
  Report Type: 
  Country: None (occurrence: None)
  Receive Date: 20110411
  Receipt Date: 20110406
  Transmission Date: 20111010
  Serious: Yes (Hospitalization)
  Sender: FDA-Public Use
  Company Number: JP-PFIZER INC-2010126371

PATIENT
  Age: 64 Year
  Sex: Male

DRUGS (10)
  1. TAMSULOSIN HCL [Concomitant]
     Dosage: UNK
     Route: 048
  2. SEROQUEL [Concomitant]
     Dosage: UNK
     Route: 048
  3. SILECE [Concomitant]
     Dosage: UNK
     Route: 048
  4. CEFOPERAZONE SODIUM/SULBACTAM SODIUM [Concomitant]
     Indication: RENAL CELL CARCINOMA
     Dosage: 1 G, 2X/DAY
     Route: 042
     Dates: start: 20100704, end: 20100714
  5. SOLANAX [Concomitant]
     Dosage: UNK
     Route: 048
  6. FIRSTCIN [Concomitant]
     Indication: RENAL CELL CARCINOMA
     Dosage: 1 G, 2X/DAY
     Route: 042
     Dates: start: 20100702, end: 20100703
  7. NAFAMOSTAT MESILATE [Concomitant]
     Indication: RENAL CELL CARCINOMA
     Dosage: 20 MG, 2X/DAY
     Dates: start: 20100703, end: 20100704
  8. PHENOBAL [Concomitant]
     Dosage: UNK
     Route: 048
  9. URSO 250 [Concomitant]
     Dosage: UNK
     Route: 048
  10. SUNITINIB MALATE [Suspect]
     Indication: RENAL CELL CARCINOMA
     Dosage: 37.5 MG, 1X/DAY
     Route: 048
     Dates: start: 20090205, end: 20100818

REACTIONS (1)
  - PYODERMA GANGRENOSUM [None]
